FAERS Safety Report 25533372 (Version 1)
Quarter: 2025Q3

REPORT INFORMATION
  Report Type: Spontaneous
  Country: EU (occurrence: EU)
  Receive Date: 20250709
  Receipt Date: 20250709
  Transmission Date: 20251020
  Serious: Yes (Hospitalization)
  Sender: NORDIC PHARMA
  Company Number: None

PATIENT
  Age: 48 Year
  Sex: Female
  Weight: 76 kg

DRUGS (9)
  1. METHOTREXATE [Suspect]
     Active Substance: METHOTREXATE
     Indication: Myositis
     Route: 058
     Dates: start: 20240707, end: 20250501
  2. METFORMIN HYDROCHLORIDE [Concomitant]
     Active Substance: METFORMIN HYDROCHLORIDE
     Indication: Type 2 diabetes mellitus
     Dosage: 500MG 2X/JR
     Route: 048
     Dates: start: 20250307
  3. AMLODIPINE/VALSARTAN TEVA SANTE 10 mg/160 mg, comprim? pellicul? [Concomitant]
     Indication: Hypertension
     Dosage: LC
     Route: 048
  4. SKENAN L.P. 100 mg, microgranules ? lib?ration prolong?e en g?lule [Concomitant]
     Indication: Pain
     Dosage: LC?100MG 2X /JR
     Route: 048
  5. SKENAN [Concomitant]
     Active Substance: MORPHINE SULFATE
     Indication: Pain
     Dosage: LC?30MG 2X /JR
     Route: 048
  6. ESIDREX [Concomitant]
     Active Substance: HYDROCHLOROTHIAZIDE
     Indication: Hypertension
     Dosage: LC
     Route: 048
  7. HYDROCORTISONE (ACETATE D^) [Concomitant]
     Indication: Myositis
     Route: 048
     Dates: start: 20250123, end: 20250301
  8. LYRICA [Concomitant]
     Active Substance: PREGABALIN
     Indication: Pain
     Dosage: LC?100MG X3/JR
     Route: 048
  9. MORPHINE SULFATE [Concomitant]
     Active Substance: MORPHINE SULFATE
     Indication: Pain
     Route: 048

REACTIONS (3)
  - Adrenal insufficiency [Recovered/Resolved]
  - Pancreatitis acute [Recovering/Resolving]
  - Product use in unapproved indication [Unknown]

NARRATIVE: CASE EVENT DATE: 20250501
